FAERS Safety Report 14477768 (Version 1)
Quarter: 2018Q1

REPORT INFORMATION
  Report Type: Report from Study
  Country: US (occurrence: US)
  Receive Date: 20180201
  Receipt Date: 20180201
  Transmission Date: 20180509
  Serious: No
  Sender: FDA-Public Use
  Company Number: US-EXELIXIS-CABO-17008516

PATIENT
  Sex: Female

DRUGS (11)
  1. LEVOTHYROXINE. [Concomitant]
     Active Substance: LEVOTHYROXINE
  2. CIPROFLOXACIN. [Concomitant]
     Active Substance: CIPROFLOXACIN
  3. HYDROCORTISONE ACETATE. [Concomitant]
     Active Substance: HYDROCORTISONE ACETATE
  4. AMLODIPINE [Concomitant]
     Active Substance: AMLODIPINE BESYLATE
  5. CALCIUM + VIT D [Concomitant]
     Active Substance: CALCIUM\VITAMIN D
  6. MAGNESIUM [Concomitant]
     Active Substance: MAGNESIUM
  7. COMETRIQ [Suspect]
     Active Substance: CABOZANTINIB S-MALATE
     Indication: THYROID CANCER
     Dosage: 140 MG, QD
     Route: 048
     Dates: start: 20160805
  8. GABAPENTIN. [Concomitant]
     Active Substance: GABAPENTIN
  9. POTASSIUM [Concomitant]
     Active Substance: POTASSIUM
  10. METOPROLOL. [Concomitant]
     Active Substance: METOPROLOL
  11. LOTRIMIN [Concomitant]
     Active Substance: CLOTRIMAZOLE

REACTIONS (2)
  - Malaise [Unknown]
  - Blood magnesium decreased [Unknown]
